FAERS Safety Report 8241815-1 (Version None)
Quarter: 2012Q1

REPORT INFORMATION
  Report Type: 
  Country: None (occurrence: None)
  Receive Date: 20120328
  Receipt Date: 20120322
  Transmission Date: 20120608
  Serious: Yes (Hospitalization)
  Sender: FDA-Public Use
  Company Number: SE-ASTRAZENECA-2012SE18078

PATIENT
  Age: 93 Year
  Sex: Female

DRUGS (13)
  1. MALVITONA [Concomitant]
  2. DIGOXIN [Concomitant]
  3. OMEPRAZOLE [Concomitant]
  4. ACETAMINOPHEN [Concomitant]
  5. NITROMEX [Concomitant]
     Dosage: (ACTAVIS GROUP HF.)
     Route: 060
  6. SPIRONOLACTONE [Concomitant]
  7. ATACAND [Suspect]
     Indication: CARDIAC FAILURE
     Route: 048
     Dates: end: 20120225
  8. FERROUS SULFATE TAB [Concomitant]
     Dosage: 100 MG FE2+ (GLAXOSMITHKLINE CONSUMER HEALTHCARE AB)
     Route: 048
  9. ZOLPIDEM TARTRATE [Concomitant]
     Dosage: SANOFI AVENTIS AB
     Route: 048
  10. DAKTACORT [Concomitant]
  11. FORLAX POWDER [Concomitant]
     Route: 048
  12. XERODENT [Concomitant]
  13. LEVOTHYROXINE SODIUM [Concomitant]

REACTIONS (2)
  - HYPOTENSION [None]
  - DYSPNOEA [None]
